FAERS Safety Report 6150122-2 (Version None)
Quarter: 2009Q2

REPORT INFORMATION
  Report Type: 
  Country: None (occurrence: None)
  Receive Date: 20090407
  Receipt Date: 20090407
  Transmission Date: 20091009
  Serious: Yes (Hospitalization)
  Sender: FDA-Public Use
  Company Number: None

PATIENT
  Age: 36 Year
  Sex: Female
  Weight: 60.782 kg

DRUGS (2)
  1. NEXAVAR [Suspect]
     Indication: METASTATIC NEOPLASM
     Dosage: 400MG TWICE A DAY ORAL
     Route: 048
     Dates: start: 20090307
  2. NEXAVAR [Suspect]
     Indication: RENAL CELL CARCINOMA
     Dosage: 400MG TWICE A DAY ORAL
     Route: 048
     Dates: start: 20090307

REACTIONS (4)
  - CHEST DISCOMFORT [None]
  - DYSPNOEA [None]
  - MALIGNANT NEOPLASM PROGRESSION [None]
  - METASTASES TO CHEST WALL [None]
